FAERS Safety Report 10189380 (Version 1)
Quarter: 2014Q2

REPORT INFORMATION
  Report Type: Report from Study
  Country: BR (occurrence: BR)
  Receive Date: 20140522
  Receipt Date: 20140522
  Transmission Date: 20141212
  Serious: Yes (Hospitalization)
  Sender: FDA-Public Use
  Company Number: BR-BAYER-2014-072666

PATIENT
  Age: 36 Year
  Sex: Female

DRUGS (7)
  1. BETAFERON [Suspect]
     Indication: RELAPSING-REMITTING MULTIPLE SCLEROSIS
     Dosage: 1 ML, QOD (9 DOSES)
     Route: 058
     Dates: start: 201401
  2. BETAFERON [Suspect]
     Indication: RELAPSING-REMITTING MULTIPLE SCLEROSIS
     Dosage: 15 DOSES
     Dates: start: 201404, end: 20140506
  3. OMEPRAZOLE [Suspect]
     Dosage: UNK
     Dates: start: 201404
  4. FLODIN D [Concomitant]
     Indication: PREMEDICATION
     Dosage: 150 MG, QOD
     Route: 048
     Dates: start: 201404, end: 20140506
  5. DONAREN [Concomitant]
     Indication: DEPRESSION
     Dosage: 300 MG, QD
     Route: 048
     Dates: start: 2012
  6. DONAREN [Concomitant]
     Indication: ANXIETY
  7. ZOLPIDEM [Concomitant]
     Indication: SLEEP DISORDER
     Dosage: 10 MG, PRN
     Route: 048
     Dates: start: 2012

REACTIONS (11)
  - Pyrexia [Recovered/Resolved]
  - Pain [Recovered/Resolved]
  - Pyrexia [Recovered/Resolved]
  - Anxiety [Recovering/Resolving]
  - Anorexia nervosa [Recovering/Resolving]
  - Aphagia [Recovering/Resolving]
  - Asthenia [Recovering/Resolving]
  - Multiple sclerosis relapse [Not Recovered/Not Resolved]
  - Optic neuritis [Not Recovered/Not Resolved]
  - Visual impairment [Not Recovered/Not Resolved]
  - Hypersensitivity [Recovered/Resolved]
